FAERS Safety Report 11982310 (Version 1)
Quarter: 2016Q1

REPORT INFORMATION
  Report Type: Spontaneous
  Country: US (occurrence: None)
  Receive Date: 20160129
  Receipt Date: 20160129
  Transmission Date: 20160526
  Serious: Yes (Hospitalization)
  Sender: FDA-Public Use
  Company Number: None

PATIENT
  Age: 51 Year
  Sex: Female
  Weight: 56.7 kg

DRUGS (9)
  1. BUPROPION (WELLBUTRIN SR) [Concomitant]
  2. HYDROCODONE-ACETAMINOPHEN (NORCO) [Concomitant]
  3. LOVENOX [Concomitant]
     Active Substance: ENOXAPARIN SODIUM
  4. WARFARIN (CODUMADIN) [Concomitant]
  5. SYMBICORT [Concomitant]
     Active Substance: BUDESONIDE\FORMOTEROL FUMARATE DIHYDRATE
  6. DIPHENHYDRAMINE (BENADRYL) [Concomitant]
  7. ALBUTEROL (PROAIR HFA) [Concomitant]
  8. NAPROXEN. [Suspect]
     Active Substance: NAPROXEN
     Indication: PAIN
     Route: 048
  9. OXYCODONE/APAP (PERCOCET) ? [Concomitant]

REACTIONS (8)
  - Erythema multiforme [None]
  - Anaphylactic reaction [None]
  - Urticaria [None]
  - Toothache [None]
  - Tooth infection [None]
  - Eye pain [None]
  - Mouth ulceration [None]
  - Rash [None]

NARRATIVE: CASE EVENT DATE: 20151230
